FAERS Safety Report 12480008 (Version 1)
Quarter: 2016Q2

REPORT INFORMATION
  Report Type: Spontaneous
  Country: US (occurrence: US)
  Receive Date: 20160620
  Receipt Date: 20160620
  Transmission Date: 20160815
  Serious: No
  Sender: FDA-Public Use
  Company Number: US-JNJFOC-20160516902

PATIENT
  Age: 46 Year
  Sex: Male

DRUGS (2)
  1. QUINAPRIL. [Concomitant]
     Active Substance: QUINAPRIL
     Indication: ANKYLOSING SPONDYLITIS
     Route: 065
  2. SIMPONI [Suspect]
     Active Substance: GOLIMUMAB
     Indication: ANKYLOSING SPONDYLITIS
     Dosage: 0.5 ML
     Route: 058

REACTIONS (1)
  - Lipoma [Unknown]
